FAERS Safety Report 18533266 (Version 1)
Quarter: 2020Q4

REPORT INFORMATION
  Report Type: Spontaneous
  Country: US (occurrence: US)
  Receive Date: 20201120
  Receipt Date: 20201120
  Transmission Date: 20210114
  Serious: Yes (Death)
  Sender: FDA-Public Use
  Company Number: None

PATIENT
  Age: 99 Year
  Sex: Female
  Weight: 53.1 kg

DRUGS (3)
  1. COREG [Concomitant]
     Active Substance: CARVEDILOL
  2. KEPPRA [Concomitant]
     Active Substance: LEVETIRACETAM
  3. PROCRIT [Suspect]
     Active Substance: ERYTHROPOIETIN
     Indication: ANAEMIA
     Dosage: ?          OTHER FREQUENCY:WEEKLY;?
     Route: 058
     Dates: start: 20201002, end: 20201120

REACTIONS (1)
  - Death [None]

NARRATIVE: CASE EVENT DATE: 20201120
